FAERS Safety Report 5934193-1 (Version None)
Quarter: 2008Q4

REPORT INFORMATION
  Report Type: 
  Country: None (occurrence: None)
  Receive Date: 20081029
  Receipt Date: 20081023
  Transmission Date: 20090506
  Serious: Yes (Hospitalization)
  Sender: FDA-Public Use
  Company Number: D0059173A

PATIENT
  Age: 51 Year
  Sex: Male
  Weight: 151 kg

DRUGS (7)
  1. AVANDAMET [Suspect]
     Indication: DIABETES MELLITUS
     Dosage: 1004MG TWICE PER DAY
     Route: 048
     Dates: end: 20060320
  2. METOPROLOL TARTRATE [Concomitant]
     Route: 065
  3. OLMESARTAN MEDOXOMIL [Concomitant]
     Route: 065
  4. SIMVASTATIN [Concomitant]
     Route: 065
  5. FALITHROM [Concomitant]
     Route: 065
  6. HYDROCHLOROTHIAZIDE [Concomitant]
     Route: 065
  7. DIGITOXIN INJ [Concomitant]
     Route: 065

REACTIONS (2)
  - ATRIAL FIBRILLATION [None]
  - WEIGHT INCREASED [None]
